FAERS Safety Report 17937304 (Version 2)
Quarter: 2020Q2

REPORT INFORMATION
  Report Type: Spontaneous
  Country: CN (occurrence: CN)
  Receive Date: 20200624
  Receipt Date: 20200626
  Transmission Date: 20200714
  Serious: Yes (Death, Other)
  Sender: FDA-Public Use
  Company Number: CN-ROCHE-2626969

PATIENT
  Age: 58 Year
  Sex: Male

DRUGS (13)
  1. OXALIPLATIN. [Concomitant]
     Active Substance: OXALIPLATIN
     Indication: COLON CANCER
     Route: 065
     Dates: start: 201701, end: 201708
  2. CETUXIMAB. [Concomitant]
     Active Substance: CETUXIMAB
     Route: 065
     Dates: start: 20180531, end: 20180614
  3. FRUQUINTINIB. [Concomitant]
     Active Substance: FRUQUINTINIB
     Route: 065
     Dates: start: 20190617
  4. AVASTIN [Suspect]
     Active Substance: BEVACIZUMAB
     Indication: COLON CANCER
     Route: 065
     Dates: start: 201709, end: 201712
  5. CETUXIMAB. [Concomitant]
     Active Substance: CETUXIMAB
     Route: 065
     Dates: start: 20180627, end: 20181031
  6. FRUQUINTINIB. [Concomitant]
     Active Substance: FRUQUINTINIB
     Indication: COLON CANCER
     Route: 065
     Dates: start: 20190101, end: 20190708
  7. CALCIUM FOLINATE [Concomitant]
     Active Substance: LEUCOVORIN CALCIUM
     Indication: COLON CANCER
     Route: 065
     Dates: start: 20171228, end: 20180517
  8. 5-FLUOROURACIL [FLUOROURACIL] [Concomitant]
     Active Substance: FLUOROURACIL
     Indication: COLON CANCER
     Route: 065
     Dates: start: 20171228, end: 20180517
  9. XELODA [Suspect]
     Active Substance: CAPECITABINE
     Indication: COLON CANCER
     Route: 048
     Dates: start: 201701, end: 201708
  10. IRINOTECAN [Concomitant]
     Active Substance: IRINOTECAN
     Route: 065
     Dates: start: 20171228, end: 20180517
  11. RALTITREXED [Concomitant]
     Active Substance: RALTITREXED
     Indication: COLON CANCER
     Route: 065
     Dates: start: 20190617
  12. IRINOTECAN [Concomitant]
     Active Substance: IRINOTECAN
     Indication: COLON CANCER
     Route: 065
     Dates: start: 201709, end: 201712
  13. CETUXIMAB. [Concomitant]
     Active Substance: CETUXIMAB
     Indication: COLON CANCER
     Route: 065
     Dates: start: 20171228, end: 20180517

REACTIONS (7)
  - Asthenia [Recovering/Resolving]
  - Dysphonia [Unknown]
  - Death [Fatal]
  - Diarrhoea [Recovering/Resolving]
  - Respiratory failure [Unknown]
  - Abdominal pain [Recovering/Resolving]
  - Mucosal inflammation [Unknown]

NARRATIVE: CASE EVENT DATE: 2018
